FAERS Safety Report 9465553 (Version 2)
Quarter: 2013Q3

REPORT INFORMATION
  Report Type: Spontaneous
  Country: US (occurrence: US)
  Receive Date: 20130820
  Receipt Date: 20130905
  Transmission Date: 20140515
  Serious: Yes (Other)
  Sender: FDA-Public Use
  Company Number: US-JNJFOC-20130806327

PATIENT
  Age: 76 Year
  Sex: Male
  Weight: 86.18 kg

DRUGS (8)
  1. XARELTO [Suspect]
     Indication: CEREBROVASCULAR ACCIDENT PROPHYLAXIS
     Route: 048
     Dates: start: 20130729, end: 20130812
  2. XARELTO [Suspect]
     Indication: ATRIAL FIBRILLATION
     Route: 048
     Dates: start: 20130729, end: 20130812
  3. LISINOPRIL [Concomitant]
     Indication: CARDIAC DISORDER
     Route: 048
  4. METOPROLOL [Concomitant]
     Indication: CARDIAC DISORDER
     Route: 048
     Dates: start: 2011
  5. DIGOXIN [Concomitant]
     Indication: CARDIAC DISORDER
     Route: 065
  6. LANOXIN [Concomitant]
     Indication: CARDIAC DISORDER
     Route: 065
  7. ASPIRIN [Concomitant]
     Route: 065
  8. VITAMIN D3 [Concomitant]
     Route: 065

REACTIONS (6)
  - Oesophageal disorder [Recovered/Resolved]
  - Gastric disorder [Recovered/Resolved]
  - Flatulence [Recovered/Resolved]
  - Dizziness [Recovered/Resolved]
  - Headache [Recovered/Resolved]
  - Confusional state [Recovered/Resolved]
